FAERS Safety Report 6449493-9 (Version None)
Quarter: 2009Q4

REPORT INFORMATION
  Report Type: 
  Country: None (occurrence: None)
  Receive Date: 20091120
  Receipt Date: 20091109
  Transmission Date: 20100525
  Serious: Yes (Hospitalization, Other)
  Sender: FDA-Public Use
  Company Number: US-ELI_LILLY_AND_COMPANY-US200911002143

PATIENT
  Sex: Female

DRUGS (3)
  1. CYMBALTA [Suspect]
     Indication: DEPRESSION
     Dosage: 30 MG, DAILY (1/D)
     Route: 065
     Dates: start: 20070101, end: 20090301
  2. CYMBALTA [Suspect]
     Dosage: 30 MG, DAILY (1/D)
     Route: 065
     Dates: start: 20090101, end: 20090914
  3. CLONAZEPAM [Concomitant]
     Dosage: 0.5 MG, UNK

REACTIONS (7)
  - ABNORMAL BEHAVIOUR [None]
  - IMPAIRED SELF-CARE [None]
  - PARANOIA [None]
  - PERSECUTORY DELUSION [None]
  - SCHIZOPHRENIA [None]
  - SURGERY [None]
  - WITHDRAWAL SYNDROME [None]
